FAERS Safety Report 17601070 (Version 1)
Quarter: 2020Q1

REPORT INFORMATION
  Report Type: Spontaneous
  Country: FR (occurrence: FR)
  Receive Date: 20200331
  Receipt Date: 20200331
  Transmission Date: 20200409
  Serious: Yes (Hospitalization)
  Sender: FDA-Public Use
  Company Number: FR-TEVA-2020-FR-1212964

PATIENT
  Age: 94 Year
  Sex: Female
  Weight: 42 kg

DRUGS (6)
  1. BISOPROLOL (HEMIFUMARATE DE) [Concomitant]
     Active Substance: BISOPROLOL FUMARATE
     Route: 048
  2. COVERAM [Concomitant]
     Active Substance: AMLODIPINE\PERINDOPRIL
     Route: 048
  3. EUPRESSYL 60 MG, G?LULE [Concomitant]
     Active Substance: URAPIDIL
     Route: 048
  4. IRBESARTAN. [Concomitant]
     Active Substance: IRBESARTAN
     Route: 048
  5. PANTOPRAZOLE [Suspect]
     Active Substance: PANTOPRAZOLE
     Indication: ABDOMINAL PAIN UPPER
     Dosage: 80 MG
     Route: 048
     Dates: start: 20200121, end: 20200127
  6. TRINIPATCH 5 MG/24 HEURES, DISPOSITIF TRANSDERMIQUE (22,4 MG / 7 CM?) [Concomitant]
     Route: 062

REACTIONS (2)
  - Pseudomembranous colitis [Recovering/Resolving]
  - Clostridium difficile colitis [Recovered/Resolved]

NARRATIVE: CASE EVENT DATE: 20200125
